FAERS Safety Report 24304093 (Version 2)
Quarter: 2024Q4

REPORT INFORMATION
  Report Type: Report from Study
  Country: US (occurrence: US)
  Receive Date: 20240910
  Receipt Date: 20241003
  Transmission Date: 20250115
  Serious: Yes (Hospitalization, Other)
  Sender: Pyros Pharmaceuticals
  Company Number: US-PYROS PHARMACEUTICALS, INC-2024-PYROS-US000035

PATIENT
  Age: 3 Year
  Sex: Female
  Weight: 16.78 kg

DRUGS (21)
  1. VIGPODER [Suspect]
     Active Substance: VIGABATRIN
     Indication: Seizure
     Dosage: 24 ML (1200 MG), BID
     Dates: start: 202406, end: 202409
  2. VIGPODER [Suspect]
     Active Substance: VIGABATRIN
     Indication: Infantile spasms
  3. RUFINAMIDE [Concomitant]
     Active Substance: RUFINAMIDE
     Indication: Seizure
     Dosage: BID
  4. CLONAZEPAM [Concomitant]
     Active Substance: CLONAZEPAM
     Indication: Seizure
     Dosage: UNK UNK, TID
  5. CLONAZEPAM [Concomitant]
     Active Substance: CLONAZEPAM
     Dosage: 0.6 ML, DOSE, STRENGTH, FREQUENCY WERE UNKNOWN
  6. CLOBAZAM [Concomitant]
     Active Substance: CLOBAZAM
     Indication: Seizure
     Dosage: BID
  7. BACLOFEN [Concomitant]
     Active Substance: BACLOFEN
     Indication: Muscle spasms
     Dosage: TID
  8. TIZANIDINE [Concomitant]
     Active Substance: TIZANIDINE
     Indication: Muscle spasms
     Dosage: TID
  9. OMEPRAZOLE [Concomitant]
     Active Substance: OMEPRAZOLE
     Indication: Gastrooesophageal reflux disease
     Dosage: 4.5 ML, FREQUENCY WAS NOT SPECIFIED
  10. GABAPENTIN [Concomitant]
     Active Substance: GABAPENTIN
     Indication: Seizure
     Dosage: BID
  11. CETIRIZINE [Concomitant]
     Active Substance: CETIRIZINE HYDROCHLORIDE
     Indication: Seasonal allergy
     Dosage: ONCE DAILY AT NIGHT
  12. PHENOBARBITAL [Concomitant]
     Active Substance: PHENOBARBITAL
     Indication: Seizure
     Dosage: 2.8 ML, BID
  13. ERYTHROMYCIN [Concomitant]
     Active Substance: ERYTHROMYCIN
     Indication: Gastrointestinal hypomotility
     Dosage: UNK, QID
  14. CULTURELLE KIDS PACKETS [Concomitant]
     Indication: Gastrointestinal hypomotility
     Dosage: 1 DOSAGE FORM, DAILY
  15. FLONASE [Concomitant]
     Active Substance: FLUTICASONE PROPIONATE
     Indication: Seasonal allergy
     Dosage: 50 UG, BID
     Route: 045
  16. ALBUTEROL [Concomitant]
     Active Substance: ALBUTEROL
     Indication: Nasal congestion
     Dosage: UNK, BID
  17. BUDESONIDE [Concomitant]
     Active Substance: BUDESONIDE
     Indication: Nasal congestion
     Dosage: UNK, BID
  18. SODIUM CHLORIDE [Concomitant]
     Active Substance: SODIUM CHLORIDE
     Indication: Nasal congestion
     Dosage: UNK, BID
  19. SCOPOLAMINE [Concomitant]
     Active Substance: SCOPOLAMINE
     Indication: Drooling
     Dosage: 1 MG, Q72HR
     Route: 062
  20. FELBAMATE [Concomitant]
     Active Substance: FELBAMATE
     Indication: Product used for unknown indication
     Dosage: 2.1 ML, TID
  21. SODIUM CHLORIDE [Concomitant]
     Active Substance: SODIUM CHLORIDE
     Route: 045

REACTIONS (7)
  - Seizure [Recovered/Resolved]
  - Oxygen saturation decreased [Not Recovered/Not Resolved]
  - Obstructive airways disorder [Not Recovered/Not Resolved]
  - Hypoxia [Unknown]
  - Sleep apnoea syndrome [Unknown]
  - Off label use [Unknown]
  - Off label use [Unknown]

NARRATIVE: CASE EVENT DATE: 20240612
